FAERS Safety Report 4520915-3 (Version None)
Quarter: 2004Q4

REPORT INFORMATION
  Report Type: 
  Country: None (occurrence: None)
  Receive Date: 20041206
  Receipt Date: 20041206
  Transmission Date: 20050328
  Serious: Yes (Other)
  Sender: FDA-Public Use
  Company Number: None

PATIENT
  Age: 52 Year
  Sex: Female
  Weight: 90.7194 kg

DRUGS (2)
  1. SINGULAIR [Suspect]
     Indication: ASTHMA
     Dosage: 10 MG DAILY ORAL
     Route: 048
     Dates: start: 20041018, end: 20041130
  2. SINGULAIR [Suspect]
     Indication: RHINITIS SEASONAL
     Dosage: 10 MG DAILY ORAL
     Route: 048
     Dates: start: 20041018, end: 20041130

REACTIONS (2)
  - MEDICATION ERROR [None]
  - URTICARIA [None]
